FAERS Safety Report 7505132-7 (Version None)
Quarter: 2011Q2

REPORT INFORMATION
  Report Type: 
  Country: None (occurrence: None)
  Receive Date: 20110526
  Receipt Date: 20080407
  Transmission Date: 20111010
  Serious: No
  Sender: FDA-Public Use
  Company Number: 2008BI009503

PATIENT
  Age: 61 Year
  Sex: Male

DRUGS (2)
  1. TYSABRI [Suspect]
     Indication: MULTIPLE SCLEROSIS
     Route: 042
     Dates: start: 20070612
  2. AVONEX [Concomitant]
     Indication: MULTIPLE SCLEROSIS
     Route: 030
     Dates: start: 19960301

REACTIONS (2)
  - GAIT DISTURBANCE [None]
  - PARAESTHESIA [None]
